FAERS Safety Report 6210175-X (Version None)
Quarter: 2009Q2

REPORT INFORMATION
  Report Type: 
  Country: None (occurrence: None)
  Receive Date: 20090601
  Receipt Date: 20090528
  Transmission Date: 20091009
  Serious: Yes (Life-Threatening, Hospitalization)
  Sender: FDA-Public Use
  Company Number: NL-JNJFOC-20090506904

PATIENT
  Sex: Female
  Weight: 61 kg

DRUGS (2)
  1. REMINYL RETARD CAPSULE [Suspect]
     Indication: DEMENTIA ALZHEIMER'S TYPE
     Route: 065
  2. CARBASALATE CALCIUM [Concomitant]
     Route: 065

REACTIONS (1)
  - MALAISE [None]
